FAERS Safety Report 19233184 (Version 1)
Quarter: 2021Q2

REPORT INFORMATION
  Report Type: Spontaneous
  Country: US (occurrence: US)
  Receive Date: 20210507
  Receipt Date: 20210507
  Transmission Date: 20210717
  Serious: No
  Sender: FDA-Public Use
  Company Number: US-MAYNE PHARMA-2021MYN000362

PATIENT

DRUGS (1)
  1. FLUOROURACIL. [Suspect]
     Active Substance: FLUOROURACIL
     Indication: HYPERKERATOSIS
     Dosage: 5 %, QD
     Route: 061
     Dates: start: 20210314, end: 20210325

REACTIONS (5)
  - Oral pain [Not Recovered/Not Resolved]
  - Blister [Not Recovered/Not Resolved]
  - Eye inflammation [Not Recovered/Not Resolved]
  - Pruritus [Not Recovered/Not Resolved]
  - Contusion [Not Recovered/Not Resolved]

NARRATIVE: CASE EVENT DATE: 202103
